FAERS Safety Report 16363884 (Version 2)
Quarter: 2019Q2

REPORT INFORMATION
  Report Type: Report from Study
  Country: CA (occurrence: CA)
  Receive Date: 20190528
  Receipt Date: 20190604
  Transmission Date: 20190711
  Serious: Yes (Other)
  Sender: FDA-Public Use
  Company Number: CA-GLAXOSMITHKLINE-CA2019GSK085182

PATIENT
  Age: 46 Year
  Sex: Female

DRUGS (2)
  1. ADVIL [Suspect]
     Active Substance: IBUPROFEN
     Indication: PAIN
     Dosage: UNK
  2. MEPOLIZUMAB [Suspect]
     Active Substance: MEPOLIZUMAB
     Indication: ASTHMA
     Dosage: 100 MG, Z MONTHLY
     Route: 042
     Dates: start: 20180606

REACTIONS (12)
  - Back pain [Unknown]
  - Product dose omission [Unknown]
  - Pyrexia [Unknown]
  - Dyspnoea [Unknown]
  - Headache [Unknown]
  - Heart rate increased [Unknown]
  - Malaise [Unknown]
  - Drug ineffective [Unknown]
  - Musculoskeletal chest pain [Unknown]
  - Cough [Unknown]
  - Pneumonia [Recovering/Resolving]
  - Myalgia [Unknown]

NARRATIVE: CASE EVENT DATE: 20190510
